FAERS Safety Report 6580323-0 (Version None)
Quarter: 2010Q1

REPORT INFORMATION
  Report Type: 
  Country: None (occurrence: None)
  Receive Date: 20100212
  Receipt Date: 20100120
  Transmission Date: 20100710
  Serious: No
  Sender: FDA-Public Use
  Company Number: US-ALLERGAN-1000759US

PATIENT
  Sex: Female

DRUGS (6)
  1. COMBIGAN [Suspect]
     Indication: INTRAOCULAR PRESSURE INCREASED
     Dosage: 1 GTT, BID
     Route: 047
  2. CALCIUM [Concomitant]
  3. GABAPENTIN [Concomitant]
  4. LIPITOR [Concomitant]
  5. VERAPAMIL [Concomitant]
  6. TYLENOL W/ CODEINE NO. 3 [Concomitant]

REACTIONS (1)
  - VISION BLURRED [None]
